FAERS Safety Report 12190260 (Version 2)
Quarter: 2016Q1

REPORT INFORMATION
  Report Type: Spontaneous
  Country: DE (occurrence: DE)
  Receive Date: 20160318
  Receipt Date: 20160329
  Transmission Date: 20160526
  Serious: Yes (Other)
  Sender: FDA-Public Use
  Company Number: PHHY2016DE032847

PATIENT
  Age: 73 Year
  Sex: Female
  Weight: 96 kg

DRUGS (1)
  1. RASILEZ HCT [Suspect]
     Active Substance: ALISKIREN\HYDROCHLOROTHIAZIDE
     Indication: HYPERTENSION
     Dosage: 1 DF, QD
     Route: 065
     Dates: start: 20140816, end: 201602

REACTIONS (25)
  - Blood glucose increased [Unknown]
  - Oral mucosal blistering [Not Recovered/Not Resolved]
  - Visual acuity reduced [Unknown]
  - Musculoskeletal discomfort [Unknown]
  - Dysphagia [Unknown]
  - Muscle spasms [Unknown]
  - Pruritus [Unknown]
  - Peripheral swelling [Unknown]
  - Erythema [Unknown]
  - Fatigue [Unknown]
  - Stomatitis [Unknown]
  - Skin exfoliation [Unknown]
  - Asthenia [Not Recovered/Not Resolved]
  - Swollen tongue [Unknown]
  - Dyspnoea [Unknown]
  - Photosensitivity reaction [Unknown]
  - Pyrexia [Unknown]
  - Rash macular [Unknown]
  - Dizziness [Not Recovered/Not Resolved]
  - Chromaturia [Unknown]
  - Arthralgia [Unknown]
  - Sleep disorder [Unknown]
  - Cough [Unknown]
  - Rash [Unknown]
  - Visual impairment [Not Recovered/Not Resolved]

NARRATIVE: CASE EVENT DATE: 201408
